FAERS Safety Report 14406327 (Version 1)
Quarter: 2018Q1

REPORT INFORMATION
  Report Type: Spontaneous
  Country: US (occurrence: US)
  Receive Date: 20180118
  Receipt Date: 20180118
  Transmission Date: 20180509
  Serious: No
  Sender: FDA-Public Use
  Company Number: US-GLAXOSMITHKLINE-US2018007773

PATIENT
  Sex: Male

DRUGS (3)
  1. RANITIDINE. [Concomitant]
     Active Substance: RANITIDINE
  2. ALPRAZOLAM. [Concomitant]
     Active Substance: ALPRAZOLAM
  3. ANORO ELLIPTA [Suspect]
     Active Substance: UMECLIDINIUM BROMIDE\VILANTEROL TRIFENATATE
     Indication: PRODUCTIVE COUGH
     Dosage: 1 PUFF(S), QD
     Route: 055

REACTIONS (5)
  - Dry mouth [Not Recovered/Not Resolved]
  - Dysuria [Unknown]
  - Product use in unapproved indication [Unknown]
  - Secretion discharge [Unknown]
  - Medication residue present [Unknown]
